FAERS Safety Report 6550018-8 (Version None)
Quarter: 2010Q1

REPORT INFORMATION
  Report Type: 
  Country: None (occurrence: None)
  Receive Date: 20100125
  Receipt Date: 20100115
  Transmission Date: 20100710
  Serious: Yes (Hospitalization)
  Sender: FDA-Public Use
  Company Number: FR-BRISTOL-MYERS SQUIBB COMPANY-14943369

PATIENT
  Age: 77 Year
  Sex: Female
  Weight: 44 kg

DRUGS (10)
  1. CARBIDOPA + LEVODOPA [Suspect]
     Indication: PARKINSON'S DISEASE
     Dosage: 1 DF = 200-20MG
     Route: 048
     Dates: end: 20091107
  2. CAPTOPRIL [Suspect]
     Indication: ORTHOSTATIC HYPOTENSION
     Route: 048
     Dates: start: 20090801, end: 20091107
  3. HYDROCHLOROTHIAZIDE [Suspect]
     Indication: ORTHOSTATIC HYPOTENSION
     Route: 048
     Dates: start: 20090801, end: 20091107
  4. AMOXICILLIN AND CLAVULANATE POTASSIUM [Suspect]
     Indication: PROPHYLAXIS
     Route: 048
     Dates: start: 20090801, end: 20091107
  5. PREDNISONE [Suspect]
     Indication: POLYARTERITIS NODOSA
     Route: 048
     Dates: start: 20090625, end: 20091107
  6. ALPRAZOLAM [Suspect]
     Route: 048
     Dates: end: 20091107
  7. NEBIVOLOL [Suspect]
     Dosage: TAB NEBIVOLOL HCL
     Route: 048
     Dates: end: 20091107
  8. OMEPRAZOLE [Suspect]
     Route: 048
     Dates: end: 20090801
  9. AMLODIPINE [Suspect]
     Indication: ORTHOSTATIC HYPOTENSION
     Route: 048
     Dates: end: 20091107
  10. MIRTAZAPINE [Suspect]
     Dosage: TAB
     Route: 048
     Dates: end: 20091107

REACTIONS (1)
  - HEPATITIS CHOLESTATIC [None]
